FAERS Safety Report 5634918-9 (Version None)
Quarter: 2008Q1

REPORT INFORMATION
  Report Type: 
  Country: None (occurrence: None)
  Receive Date: 20080131
  Receipt Date: 20071112
  Transmission Date: 20080703
  Serious: No
  Sender: FDA-Public Use
  Company Number: 2007-US-000267

PATIENT
  Age: 8 Year
  Sex: Female
  Weight: 22 kg

DRUGS (1)
  1. INCRELEX [Suspect]
     Indication: BODY HEIGHT BELOW NORMAL
     Dosage: 0.35 MG, QD, SUBCUTANEOUS
     Route: 058
     Dates: start: 20070808, end: 20071102

REACTIONS (4)
  - DIPLOPIA [None]
  - DIZZINESS [None]
  - STRABISMUS [None]
  - VOMITING [None]
